FAERS Safety Report 19919163 (Version 3)
Quarter: 2022Q1

REPORT INFORMATION
  Report Type: Spontaneous
  Country: JP (occurrence: JP)
  Receive Date: 20211005
  Receipt Date: 20220228
  Transmission Date: 20220423
  Serious: No
  Sender: FDA-Public Use
  Company Number: JP-009507513-2109JPN007061

PATIENT
  Age: 61 Year
  Sex: Male

DRUGS (4)
  1. DORZOLAMIDE HYDROCHLORIDE [Suspect]
     Active Substance: DORZOLAMIDE HYDROCHLORIDE
     Indication: Glaucoma
     Dosage: 3 TIMES A DAY 1GTT OU (3 IN 1 D)
     Route: 047
  2. BIMATOPROST [Concomitant]
     Active Substance: BIMATOPROST
     Indication: Glaucoma
     Dosage: QD (1 IN 1 D)
     Route: 047
  3. ALPHAGAN P [Concomitant]
     Active Substance: BRIMONIDINE TARTRATE
     Indication: Glaucoma
     Dosage: QD 1 GTT (1 GTT, 1 IN 1 D)
     Route: 047
  4. CARTEOLOL [Concomitant]
     Active Substance: CARTEOLOL
     Indication: Glaucoma
     Dosage: QD (1 IN 1 D)
     Route: 047

REACTIONS (3)
  - Eye irritation [Unknown]
  - Ocular hyperaemia [Unknown]
  - Intentional product use issue [Unknown]

NARRATIVE: CASE EVENT DATE: 20110228
